FAERS Safety Report 7780862-0 (Version None)
Quarter: 2011Q3

REPORT INFORMATION
  Report Type: 
  Country: None (occurrence: None)
  Receive Date: 20110927
  Receipt Date: 20110921
  Transmission Date: 20111222
  Serious: Yes (Death, Other)
  Sender: FDA-Public Use
  Company Number: US-BAYER-200940574NA

PATIENT
  Age: 79 Year
  Sex: Male
  Weight: 82 kg

DRUGS (16)
  1. TRASYLOL [Suspect]
     Dosage: 200ML PUMP PRIME
     Route: 042
     Dates: start: 20060516, end: 20060516
  2. PLAVIX [Concomitant]
     Dosage: 75 MG DAILY
     Route: 048
  3. HEPARIN [Concomitant]
     Dosage: 35,000 UNITS
     Route: 042
  4. ZOCOR [Concomitant]
     Dosage: 20 MG DAILY
     Route: 048
  5. COZAAR [Concomitant]
  6. HYDROCHLOROTHIAZIDE [Concomitant]
  7. TRASYLOL [Suspect]
     Indication: CORONARY ARTERY BYPASS
     Dosage: 1 ML, ONCE, INITIAL TEST DOSE
     Route: 042
     Dates: start: 20060516, end: 20060516
  8. LISINOPRIL [Concomitant]
     Dosage: 20 MG DAILY
     Route: 048
  9. ATENOLOL [Concomitant]
     Dosage: 25 MG DAILY
     Route: 048
  10. ISOSORBIDE DINITRATE [Concomitant]
  11. CONTRAST MEDIA [Concomitant]
     Indication: CATHETERISATION CARDIAC
     Dosage: UNK
     Dates: start: 20060515
  12. NIACIN [Concomitant]
  13. PROTAMINE [Concomitant]
     Route: 042
  14. TRASYLOL [Suspect]
     Dosage: LOADING DOSE OF 500 ML, THEN 50 ML /HOUR
     Route: 042
     Dates: start: 20060516, end: 20060516
  15. ACETYLSALICYLIC ACID SRT [Concomitant]
     Dosage: 325 MG DAILY
     Route: 048
  16. INSULIN [Concomitant]
     Route: 042

REACTIONS (13)
  - RENAL IMPAIRMENT [None]
  - STRESS [None]
  - UNEVALUABLE EVENT [None]
  - RENAL INJURY [None]
  - EMOTIONAL DISTRESS [None]
  - INJURY [None]
  - ANHEDONIA [None]
  - RENAL FAILURE [None]
  - MULTI-ORGAN FAILURE [None]
  - FEAR [None]
  - DEATH [None]
  - ANXIETY [None]
  - PAIN [None]
